FAERS Safety Report 17505982 (Version 1)
Quarter: 2020Q1

REPORT INFORMATION
  Report Type: Not Available
  Country: US (occurrence: US)
  Receive Date: 20200305
  Receipt Date: 20200305
  Transmission Date: 20200409
  Serious: No
  Sender: FDA-Public Use
  Company Number: US-NEUROCRINE BIOSCIENCES INC.-2020NBI00610

PATIENT
  Sex: Male

DRUGS (2)
  1. INGREZZA [Suspect]
     Active Substance: VALBENAZINE
     Route: 048
  2. INGREZZA [Suspect]
     Active Substance: VALBENAZINE
     Indication: TARDIVE DYSKINESIA
     Route: 048
     Dates: start: 20181214

REACTIONS (7)
  - Feeling cold [Unknown]
  - Anxiety [Unknown]
  - Panic attack [Unknown]
  - Fear [Unknown]
  - Diarrhoea [Unknown]
  - Suicidal ideation [Unknown]
  - Wrong technique in product usage process [Unknown]
